FAERS Safety Report 18305827 (Version 10)
Quarter: 2022Q3

REPORT INFORMATION
  Report Type: Spontaneous
  Country: CA (occurrence: CA)
  Receive Date: 20200924
  Receipt Date: 20220716
  Transmission Date: 20221027
  Serious: Yes (Other)
  Sender: FDA-Public Use
  Company Number: CA-CELLTRION INC.-2020CA027968

PATIENT

DRUGS (15)
  1. INFLECTRA [Suspect]
     Active Substance: INFLIXIMAB-DYYB
     Indication: Colitis ulcerative
     Dosage: 5 MG/KG 0, 2, 6, THEN EVERY 8 WEEKS
     Route: 042
     Dates: start: 20200901
  2. INFLECTRA [Suspect]
     Active Substance: INFLIXIMAB-DYYB
     Dosage: 5 MG/KG 0, 2, 6, THEN EVERY 8 WEEKS
     Route: 042
     Dates: start: 20200926
  3. INFLECTRA [Suspect]
     Active Substance: INFLIXIMAB-DYYB
     Dosage: 5 MG/KG 0,2,6, THEN EVERY 8 WEEKS
     Route: 042
     Dates: start: 20201026
  4. INFLECTRA [Suspect]
     Active Substance: INFLIXIMAB-DYYB
     Dosage: 5 MG/KG 0, 2, 6 THEN EVERY 8 WEEKS
     Route: 042
     Dates: start: 20201217
  5. INFLECTRA [Suspect]
     Active Substance: INFLIXIMAB-DYYB
     Dosage: 5 MG/KG 0, 2, 6 THEN EVERY 8 WEEKS
     Route: 042
     Dates: start: 20210215
  6. INFLECTRA [Suspect]
     Active Substance: INFLIXIMAB-DYYB
     Dosage: 5 MG/KG 0, 2, 6 THEN EVERY 8 WEEKS
     Route: 042
     Dates: start: 20210412
  7. INFLECTRA [Suspect]
     Active Substance: INFLIXIMAB-DYYB
     Dosage: 5 MG/KG 0, 2, 6 THEN EVERY 8 WEEKS
     Route: 042
     Dates: start: 20210607
  8. INFLECTRA [Suspect]
     Active Substance: INFLIXIMAB-DYYB
     Dosage: 5 MG/KG 0, 2, 6 THEN EVERY 8 WEEKS
     Route: 042
     Dates: start: 20210809
  9. INFLECTRA [Suspect]
     Active Substance: INFLIXIMAB-DYYB
     Dosage: 830 MG
     Route: 042
     Dates: start: 20220317
  10. INFLECTRA [Suspect]
     Active Substance: INFLIXIMAB-DYYB
     Dosage: 5 MG/KG 0, 2, 6 THEN EVERY 8 WEEKS
     Route: 042
     Dates: start: 20220706
  11. AMITRIPTYLINE [Concomitant]
     Active Substance: AMITRIPTYLINE
     Dosage: 1 DF, DOSAGE INFORMATION NOT AVAILABLE
     Route: 065
  12. AMLODIPINE BESYLATE [Concomitant]
     Active Substance: AMLODIPINE BESYLATE
     Dosage: 1 DF, DOSAGE INFORMATION NOT AVAILABLE
     Route: 065
  13. CITALOPRAM [Concomitant]
     Active Substance: CITALOPRAM HYDROBROMIDE
     Dosage: 1 DF,DOSAGE INFORMATION NOT AVAILABLE
     Route: 065
  14. CORTISONE [Concomitant]
     Active Substance: CORTISONE
     Dosage: 1 DF, DOSAGE INFORMATION NOT AVAILABLE
     Route: 065
  15. TELMISARTAN [Concomitant]
     Active Substance: TELMISARTAN
     Dosage: 1 DF, DOSAGE INFORMATION NOT AVAILABLE
     Route: 065

REACTIONS (7)
  - Abdominal hernia [Unknown]
  - Dizziness [Unknown]
  - Weight increased [Unknown]
  - Blood pressure increased [Unknown]
  - Heart rate decreased [Unknown]
  - Off label use [Unknown]
  - Intentional product use issue [Unknown]

NARRATIVE: CASE EVENT DATE: 20200901
